FAERS Safety Report 24641310 (Version 1)
Quarter: 2024Q4

REPORT INFORMATION
  Report Type: Spontaneous
  Country: DE (occurrence: DE)
  Receive Date: 20241120
  Receipt Date: 20241120
  Transmission Date: 20250115
  Serious: Yes (Hospitalization, Other)
  Sender: SANDOZ
  Company Number: None

PATIENT
  Age: 63 Year
  Sex: Male
  Weight: 74 kg

DRUGS (26)
  1. CARBOPLATIN [Suspect]
     Active Substance: CARBOPLATIN
     Indication: Non-small cell lung cancer metastatic
     Dosage: UNK
     Route: 065
     Dates: start: 20240321, end: 20240624
  2. IPILIMUMAB [Suspect]
     Active Substance: IPILIMUMAB
     Indication: Non-small cell lung cancer metastatic
     Dosage: UNK
     Route: 065
     Dates: start: 20240321, end: 20240624
  3. NIVOLUMAB [Suspect]
     Active Substance: NIVOLUMAB
     Indication: Non-small cell lung cancer metastatic
     Dosage: 360 MILLIGRAM
     Route: 065
     Dates: start: 20240321, end: 20240624
  4. NIVOLUMAB [Suspect]
     Active Substance: NIVOLUMAB
     Dosage: 360 MILLIGRAM
     Route: 065
     Dates: start: 20240321, end: 20240624
  5. NIVOLUMAB [Suspect]
     Active Substance: NIVOLUMAB
     Dosage: 360 MILLIGRAM
     Route: 065
     Dates: start: 20240321, end: 20240624
  6. NIVOLUMAB [Suspect]
     Active Substance: NIVOLUMAB
     Dosage: 360 MILLIGRAM
     Route: 065
     Dates: start: 20240321, end: 20240624
  7. PEMETREXED [Suspect]
     Active Substance: PEMETREXED
     Dosage: 960 MILLIGRAM, Q3W
     Route: 065
     Dates: start: 20240829, end: 20240829
  8. PEMETREXED [Suspect]
     Active Substance: PEMETREXED
     Dosage: 960 MILLIGRAM, Q3W
     Route: 065
     Dates: start: 20240829, end: 20240829
  9. PEMETREXED [Suspect]
     Active Substance: PEMETREXED
     Dosage: 960 MILLIGRAM, Q3W
     Route: 065
     Dates: start: 20240829, end: 20240829
  10. PEMETREXED [Suspect]
     Active Substance: PEMETREXED
     Dosage: 960 MILLIGRAM, Q3W
     Route: 065
     Dates: start: 20240829, end: 20240829
  11. PEMETREXED [Suspect]
     Active Substance: PEMETREXED
     Indication: Non-small cell lung cancer metastatic
     Dosage: UNK UNK, Q3W
     Route: 065
     Dates: start: 20240321, end: 20240624
  12. PEMETREXED [Suspect]
     Active Substance: PEMETREXED
     Dosage: UNK UNK, Q3W
     Route: 065
     Dates: start: 20240321, end: 20240624
  13. PEMETREXED [Suspect]
     Active Substance: PEMETREXED
     Dosage: UNK UNK, Q3W
     Route: 065
     Dates: start: 20240321, end: 20240624
  14. PEMETREXED [Suspect]
     Active Substance: PEMETREXED
     Dosage: UNK UNK, Q3W
     Route: 065
     Dates: start: 20240321, end: 20240624
  15. PEMETREXED [Suspect]
     Active Substance: PEMETREXED
     Dosage: UNK UNK, Q3W
     Route: 065
     Dates: start: 20241024
  16. PEMETREXED [Suspect]
     Active Substance: PEMETREXED
     Dosage: UNK UNK, Q3W
     Route: 065
     Dates: start: 20241024
  17. PEMETREXED [Suspect]
     Active Substance: PEMETREXED
     Dosage: UNK UNK, Q3W
     Route: 065
     Dates: start: 20241024
  18. PEMETREXED [Suspect]
     Active Substance: PEMETREXED
     Dosage: UNK UNK, Q3W
     Route: 065
     Dates: start: 20241024
  19. PEMBROLIZUMAB [Suspect]
     Active Substance: PEMBROLIZUMAB
     Indication: Metastatic bronchial carcinoma
     Dosage: 200 MILLIGRAM, Q3W
     Route: 065
     Dates: start: 20240205, end: 20240205
  20. PEMBROLIZUMAB [Suspect]
     Active Substance: PEMBROLIZUMAB
     Dosage: 200 MILLIGRAM, Q3W
     Route: 065
     Dates: start: 20240205, end: 20240205
  21. PEMBROLIZUMAB [Suspect]
     Active Substance: PEMBROLIZUMAB
     Dosage: 200 MILLIGRAM, Q3W
     Route: 065
     Dates: start: 20240205, end: 20240205
  22. PEMBROLIZUMAB [Suspect]
     Active Substance: PEMBROLIZUMAB
     Dosage: 200 MILLIGRAM, Q3W
     Route: 065
     Dates: start: 20240205, end: 20240205
  23. PEMBROLIZUMAB [Suspect]
     Active Substance: PEMBROLIZUMAB
     Dosage: 200 MILLIGRAM, Q3W
     Route: 065
     Dates: start: 20240829, end: 20240829
  24. PEMBROLIZUMAB [Suspect]
     Active Substance: PEMBROLIZUMAB
     Dosage: 200 MILLIGRAM, Q3W
     Route: 065
     Dates: start: 20240829, end: 20240829
  25. PEMBROLIZUMAB [Suspect]
     Active Substance: PEMBROLIZUMAB
     Dosage: 200 MILLIGRAM, Q3W
     Route: 065
     Dates: start: 20240829, end: 20240829
  26. PEMBROLIZUMAB [Suspect]
     Active Substance: PEMBROLIZUMAB
     Dosage: 200 MILLIGRAM, Q3W
     Route: 065
     Dates: start: 20240829, end: 20240829

REACTIONS (14)
  - Hospitalisation [Recovered/Resolved]
  - Loss of consciousness [Recovered/Resolved]
  - Immune-mediated dermatitis [Recovered/Resolved]
  - Hypersensitivity [Recovered/Resolved]
  - Tachycardia [Recovered/Resolved]
  - Hypotension [Recovered/Resolved]
  - Spinal osteoarthritis [Unknown]
  - Prostatic calcification [Unknown]
  - Enostosis [Unknown]
  - Drug interaction [Unknown]
  - Paraesthesia [Recovered/Resolved]
  - Emphysema [Unknown]
  - Renal cyst [Unknown]
  - Product use issue [Unknown]

NARRATIVE: CASE EVENT DATE: 20240101
